FAERS Safety Report 9374337 (Version 3)
Quarter: 2013Q3

REPORT INFORMATION
  Report Type: Spontaneous
  Country: FR (occurrence: FR)
  Receive Date: 20130628
  Receipt Date: 20130719
  Transmission Date: 20140515
  Serious: No
  Sender: FDA-Public Use
  Company Number: FR-JNJFOC-20130616784

PATIENT
  Age: 66 Year
  Sex: Female

DRUGS (5)
  1. DUROGESIC [Suspect]
     Indication: MUSCULOSKELETAL CHEST PAIN
     Route: 062
     Dates: start: 20130524, end: 20130603
  2. SINGULAIR [Concomitant]
     Indication: ASTHMA
     Route: 048
     Dates: start: 1995
  3. LEVOCETIRIZINE [Concomitant]
     Indication: HYPERSENSITIVITY
     Route: 065
     Dates: start: 1995
  4. LEVOCETIRIZINE [Concomitant]
     Indication: ASTHMA
     Route: 065
     Dates: start: 1995
  5. PROZAC [Concomitant]
     Dosage: 1 DOSE
     Route: 065
     Dates: start: 20120907

REACTIONS (2)
  - Wrong technique in drug usage process [Recovered/Resolved]
  - Product packaging issue [Unknown]
